APPROVED DRUG PRODUCT: CICLOPIROX
Active Ingredient: CICLOPIROX
Strength: 0.77%
Dosage Form/Route: SUSPENSION;TOPICAL
Application: A077092 | Product #001
Applicant: SUN PHARMA CANADA INC
Approved: Aug 10, 2005 | RLD: No | RS: No | Type: DISCN